FAERS Safety Report 5648808-9 (Version None)
Quarter: 2008Q1

REPORT INFORMATION
  Report Type: 
  Country: None (occurrence: None)
  Receive Date: 20080131
  Receipt Date: 20071116
  Transmission Date: 20080703
  Serious: No
  Sender: FDA-Public Use
  Company Number: US200706001459

PATIENT
  Age: 68 Year
  Sex: Female
  Weight: 77.1 kg

DRUGS (2)
  1. BYETTA [Suspect]
     Indication: TYPE 2 DIABETES MELLITUS
     Dosage: 10 UG, 2/D, SUBCUTANEOUS
     Route: 058
     Dates: start: 20060101
  2. GLIMEPIRIDE [Concomitant]

REACTIONS (5)
  - ACCIDENTAL OVERDOSE [None]
  - FALL [None]
  - FATIGUE [None]
  - NAUSEA [None]
  - WRIST FRACTURE [None]
